FAERS Safety Report 23420397 (Version 6)
Quarter: 2024Q3

REPORT INFORMATION
  Report Type: Report from Study
  Country: CA (occurrence: CA)
  Receive Date: 20240119
  Receipt Date: 20240910
  Transmission Date: 20241017
  Serious: Yes (Other)
  Sender: GLAXOSMITHKLINE
  Company Number: CA-GLAXOSMITHKLINE-CA2023182229

PATIENT

DRUGS (3)
  1. BELIMUMAB [Suspect]
     Active Substance: BELIMUMAB
     Indication: Systemic lupus erythematosus
     Dosage: 10 MG/KG, Q4W
     Route: 042
     Dates: start: 20160610
  2. BELIMUMAB [Suspect]
     Active Substance: BELIMUMAB
     Dosage: 10 MG/KG, Q4W, 400 MG VIAL, IV INFUSION
     Route: 042
  3. BELIMUMAB [Suspect]
     Active Substance: BELIMUMAB
     Dosage: 10 MG/KG, Q4W
     Route: 042

REACTIONS (9)
  - Foot operation [Unknown]
  - Adrenocortical insufficiency acute [Recovered/Resolved]
  - Arthralgia [Not Recovered/Not Resolved]
  - Pain [Unknown]
  - Migraine [Recovered/Resolved]
  - Vomiting [Recovered/Resolved]
  - Asthenia [Recovered/Resolved]
  - Gait inability [Recovered/Resolved]
  - Inappropriate schedule of product administration [Recovered/Resolved]

NARRATIVE: CASE EVENT DATE: 20230108
